FAERS Safety Report 15215784 (Version 1)
Quarter: 2018Q3

REPORT INFORMATION
  Report Type: Spontaneous
  Country: US (occurrence: US)
  Receive Date: 20180703
  Receipt Date: 20180703
  Transmission Date: 20181010
  Serious: Yes (Hospitalization, Disabling)
  Sender: FDA-Public Use
  Company Number: None

PATIENT
  Age: 59 Year
  Sex: Male
  Weight: 67.5 kg

DRUGS (1)
  1. TOPROL XL [Suspect]
     Active Substance: METOPROLOL SUCCINATE
     Indication: VENTRICULAR EXTRASYSTOLES
     Dosage: ?          QUANTITY:1 TABLET(S);?
     Route: 048

REACTIONS (6)
  - Gastrooesophageal reflux disease [None]
  - Diarrhoea [None]
  - Product substitution issue [None]
  - Hiatus hernia [None]
  - Abdominal pain [None]
  - Muscle spasms [None]

NARRATIVE: CASE EVENT DATE: 20180120
